FAERS Safety Report 8155932-8 (Version None)
Quarter: 2012Q1

REPORT INFORMATION
  Report Type: 
  Country: None (occurrence: None)
  Receive Date: 20120221
  Receipt Date: 20120221
  Transmission Date: 20120608
  Serious: Yes (Death, Life-Threatening, Hospitalization)
  Sender: FDA-Public Use
  Company Number: None

PATIENT
  Age: 41 Year
  Sex: Male
  Weight: 68.0396 kg

DRUGS (1)
  1. TRAMADOL HCL [Suspect]
     Dosage: 50MG 1-2 TAB 3X ORAL
     Route: 048

REACTIONS (6)
  - HYPOPNOEA [None]
  - FEELING HOT [None]
  - BODY TEMPERATURE INCREASED [None]
  - DYSPNOEA [None]
  - NAUSEA [None]
  - COLD SWEAT [None]
